FAERS Safety Report 24980701 (Version 1)
Quarter: 2025Q1

REPORT INFORMATION
  Report Type: Spontaneous
  Country: US (occurrence: US)
  Receive Date: 20250218
  Receipt Date: 20250218
  Transmission Date: 20250409
  Serious: No
  Sender: ABBVIE
  Company Number: US-ABBVIE-6135539

PATIENT
  Sex: Female

DRUGS (3)
  1. RINVOQ [Suspect]
     Active Substance: UPADACITINIB
     Indication: Crohn^s disease
     Dosage: FORM STRENGTH: 45MILLIGRAM
     Route: 048
     Dates: start: 20241227
  2. XOLAIR [Concomitant]
     Active Substance: OMALIZUMAB
     Indication: Urticaria
  3. NURTEC ODT [Concomitant]
     Active Substance: RIMEGEPANT SULFATE
     Indication: Migraine

REACTIONS (6)
  - Skin ulcer [Recovered/Resolved]
  - Lymphadenopathy [Recovering/Resolving]
  - Acne [Recovered/Resolved]
  - Choking [Recovered/Resolved]
  - Abdominal pain upper [Recovered/Resolved]
  - Pain [Recovering/Resolving]

NARRATIVE: CASE EVENT DATE: 20250101
